FAERS Safety Report 4294908-8 (Version None)
Quarter: 2004Q1

REPORT INFORMATION
  Report Type: 
  Country: None (occurrence: None)
  Receive Date: 20040216
  Receipt Date: 20030219
  Transmission Date: 20041129
  Serious: No
  Sender: FDA-Public Use
  Company Number: US-GLAXOSMITHKLINE-A0397396B

PATIENT
  Sex: Female
  Weight: 2.7 kg

DRUGS (2)
  1. LAMICTAL [Suspect]
     Indication: DEPRESSION
     Dosage: 200MG PER DAY
     Dates: start: 20000918
  2. EFFEXOR [Concomitant]
     Dosage: 150MG PER DAY
     Route: 048

REACTIONS (2)
  - BLOOD GLUCOSE DECREASED [None]
  - DRUG EXPOSURE DURING PREGNANCY [None]
